FAERS Safety Report 24125276 (Version 2)
Quarter: 2025Q4

REPORT INFORMATION
  Report Type: Report from Study
  Country: JP (occurrence: JP)
  Receive Date: 20240723
  Receipt Date: 20251024
  Transmission Date: 20260118
  Serious: Yes (Hospitalization, Other)
  Sender: ROCHE
  Company Number: JP-ROCHE-10000031924

PATIENT
  Age: 45 Year
  Sex: Female
  Weight: 55 kg

DRUGS (13)
  1. MABTHERA [Suspect]
     Active Substance: RITUXIMAB
     Indication: Systemic scleroderma
     Dosage: SUBSEQUENT DOSAGE WERE ADMINISTERED ON 19-OCT-2023, 26-OCT-2023, 02-NOV-2023, 28-MAR-2024
     Route: 042
     Dates: start: 20231012, end: 20231012
  2. MABTHERA [Suspect]
     Active Substance: RITUXIMAB
     Dosage: SUBSEQUENT DOSAGE WERE ADMINISTERED ON 19-OCT-2023, 26-OCT-2023, 02-NOV-2023, 28-MAR-2024
     Route: 042
     Dates: start: 20231019, end: 20231019
  3. MABTHERA [Suspect]
     Active Substance: RITUXIMAB
     Dosage: SUBSEQUENT DOSAGE WERE ADMINISTERED ON 19-OCT-2023, 26-OCT-2023, 02-NOV-2023, 28-MAR-2024
     Route: 042
     Dates: start: 20231026, end: 20231026
  4. MABTHERA [Suspect]
     Active Substance: RITUXIMAB
     Dosage: SUBSEQUENT DOSAGE WERE ADMINISTERED ON 19-OCT-2023, 26-OCT-2023, 02-NOV-2023, 28-MAR-2024
     Route: 042
     Dates: start: 20231102, end: 20231102
  5. MABTHERA [Suspect]
     Active Substance: RITUXIMAB
     Dosage: SUBSEQUENT DOSAGE WERE ADMINISTERED ON 19-OCT-2023, 26-OCT-2023, 02-NOV-2023, 28-MAR-2024
     Route: 042
     Dates: start: 20240328, end: 20240328
  6. MABTHERA [Suspect]
     Active Substance: RITUXIMAB
     Dosage: SUBSEQUENT DOSAGE WERE ADMINISTERED ON 19-OCT-2023, 26-OCT-2023, 02-NOV-2023, 28-MAR-2024
     Route: 042
     Dates: start: 20240404, end: 20240404
  7. MABTHERA [Suspect]
     Active Substance: RITUXIMAB
     Dosage: SUBSEQUENT DOSAGE WERE ADMINISTERED ON 19-OCT-2023, 26-OCT-2023, 02-NOV-2023, 28-MAR-2024
     Route: 042
     Dates: start: 20240411, end: 20240411
  8. MABTHERA [Suspect]
     Active Substance: RITUXIMAB
     Dosage: SUBSEQUENT DOSAGE WERE ADMINISTERED ON 19-OCT-2023, 26-OCT-2023, 02-NOV-2023, 28-MAR-2024
     Route: 042
     Dates: start: 20240418, end: 20240418
  9. PREDNISOLONE [Concomitant]
     Active Substance: PREDNISOLONE
     Indication: Systemic scleroderma
     Route: 048
  10. SARPOGRELATE HYDROCHLORIDE [Concomitant]
     Active Substance: SARPOGRELATE HYDROCHLORIDE
     Indication: Systemic scleroderma
     Route: 048
  11. TOCOPHERYL NICOTINATE, D-.ALPHA. [Concomitant]
     Active Substance: TOCOPHERYL NICOTINATE, D-.ALPHA.
     Indication: Systemic scleroderma
     Route: 048
  12. NEXIUM [Concomitant]
     Active Substance: ESOMEPRAZOLE MAGNESIUM
     Route: 048
  13. ELDECALCITOL [Concomitant]
     Active Substance: ELDECALCITOL
     Route: 048

REACTIONS (3)
  - Sudden hearing loss [Recovered/Resolved]
  - Febrile neutropenia [Recovered/Resolved]
  - Genital herpes [Unknown]

NARRATIVE: CASE EVENT DATE: 20231019
